FAERS Safety Report 8405429 (Version 3)
Quarter: 2012Q4

REPORT INFORMATION
  Report Type: 
  Country: SK (occurrence: SK)
  Receive Date: 20120214
  Receipt Date: 20120924
  Transmission Date: 20130627
  Serious: Yes (Death, Hospitalization, Other)
  Sender: FDA-Public Use
  Company Number: SK-BRISTOL-MYERS SQUIBB COMPANY-16389249

PATIENT
  Age: 46 Year
  Sex: Male

DRUGS (3)
  1. YERVOY [Suspect]
     Indication: RENAL CANCER
     Dosage: 2nd dose: 14Dec11. form:YERVOY 5MG/ML CONCENTRATE FOR SOLUTION FOR INFUSION
     Route: 042
     Dates: start: 20111123, end: 20111214
  2. YERVOY [Suspect]
     Indication: METASTASES TO LUNG
     Dosage: 2nd dose: 14Dec11. form:YERVOY 5MG/ML CONCENTRATE FOR SOLUTION FOR INFUSION
     Route: 042
     Dates: start: 20111123, end: 20111214
  3. YERVOY [Suspect]
     Indication: METASTASES TO LIVER
     Dosage: 2nd dose: 14Dec11. form:YERVOY 5MG/ML CONCENTRATE FOR SOLUTION FOR INFUSION
     Route: 042
     Dates: start: 20111123, end: 20111214

REACTIONS (5)
  - Hepatorenal failure [Fatal]
  - Respiratory failure [Fatal]
  - Hypophysitis [Not Recovered/Not Resolved]
  - Malignant neoplasm progression [Unknown]
  - Off label use [Unknown]
